FAERS Safety Report 13822538 (Version 3)
Quarter: 2018Q4

REPORT INFORMATION
  Report Type: Spontaneous
  Country: DE (occurrence: DE)
  Receive Date: 20170801
  Receipt Date: 20181008
  Transmission Date: 20190204
  Serious: Yes (Death)
  Sender: FDA-Public Use
  Company Number: DE-PURDUE PHARMA-GBR-2017-0047255

PATIENT
  Age: 56 Year
  Sex: Female
  Weight: 71 kg

DRUGS (9)
  1. TARGIN [Suspect]
     Active Substance: NALOXONE HYDROCHLORIDE\OXYCODONE HYDROCHLORIDE
     Indication: TUMOUR PAIN
     Dosage: 30 MG, DAILY, (DAILY DOSE: 90 MG MILLIGRAM(S) EVERY DAY)
     Route: 048
  2. METHADONE [Suspect]
     Active Substance: METHADONE HYDROCHLORIDE
     Dosage: UNK UNK, DAILY, (8 ML - 0 - 6 ML)
     Route: 048
     Dates: start: 20170608, end: 20170608
  3. L-THYROXIN [Concomitant]
     Active Substance: LEVOTHYROXINE SODIUM
     Indication: HYPOTHYROIDISM
     Dosage: 25 MCG, DAILY, (DAILY DOSE: 25 MCG MICROGRAM(S) EVERY DAY)
     Route: 048
  4. BISOPROLOL [Concomitant]
     Active Substance: BISOPROLOL
     Indication: HYPERTENSION
     Dosage: 5 MG, DAILY, (DAILY DOSE: 5 MG MILLIGRAM(S))
     Route: 048
  5. SELEN                              /00075001/ [Concomitant]
     Active Substance: SELENIUM
     Indication: PRODUCT USED FOR UNKNOWN INDICATION
     Dosage: 1 DF, DAILY
     Route: 048
  6. PANTOZOL [Concomitant]
     Active Substance: PANTOPRAZOLE SODIUM
     Indication: ABDOMINAL PAIN UPPER
     Dosage: 40 MG, DAILY, (DAILY DOSE: 40 MG MILLIGRAM(S) EVERY DAY)
     Route: 048
  7. TARGIN [Suspect]
     Active Substance: NALOXONE HYDROCHLORIDE\OXYCODONE HYDROCHLORIDE
     Indication: PAIN
     Dosage: 20 MG, DAILY, (DAILY DOSE: 20 MG MILLIGRAM(S) EVERY DAY)
     Route: 048
  8. METHADONE [Suspect]
     Active Substance: METHADONE HYDROCHLORIDE
     Indication: PAIN
     Dosage: 6 ML, DAILY, (DAILY DOSE: 6 ML MILLILITRE(S) EVERY DAY)
     Route: 048
     Dates: start: 20170610, end: 20170610
  9. TARGIN [Suspect]
     Active Substance: NALOXONE HYDROCHLORIDE\OXYCODONE HYDROCHLORIDE
     Indication: ARTHRALGIA
     Dosage: 30 MG, DAILY, (DAILY DOSE: 90 MG MILLIGRAM(S) EVERY DAY)
     Route: 048

REACTIONS (5)
  - Poisoning [Fatal]
  - Vomiting [Fatal]
  - Sudden death [Fatal]
  - Cyanosis [Fatal]
  - Disturbance in attention [Fatal]

NARRATIVE: CASE EVENT DATE: 20170610
